FAERS Safety Report 10164653 (Version 1)
Quarter: 2014Q2

REPORT INFORMATION
  Report Type: Spontaneous
  Country: US (occurrence: US)
  Receive Date: 20140510
  Receipt Date: 20140510
  Transmission Date: 20141212
  Serious: No
  Sender: FDA-Public Use
  Company Number: US-BRISTOL-MYERS SQUIBB COMPANY-20149399

PATIENT
  Age: 51 Year
  Sex: Female
  Weight: 104.31 kg

DRUGS (3)
  1. BYDUREON [Suspect]
     Indication: TYPE 2 DIABETES MELLITUS
     Dates: start: 20140120
  2. GLIMEPIRIDE [Concomitant]
     Route: 048
  3. JANUVIA [Concomitant]
     Route: 048

REACTIONS (2)
  - Injection site pain [Recovered/Resolved]
  - Expired product administered [Unknown]
